FAERS Safety Report 8621296-6 (Version None)
Quarter: 2012Q3

REPORT INFORMATION
  Report Type: 
  Country: None (occurrence: None)
  Receive Date: 20120824
  Receipt Date: 20120816
  Transmission Date: 20120928
  Serious: Yes (Hospitalization)
  Sender: FDA-Public Use
  Company Number: SE-AMGEN-SWESP2012039626

PATIENT
  Age: 69 Year
  Sex: Female
  Weight: 59.7 kg

DRUGS (3)
  1. PROLIA [Suspect]
     Indication: OSTEOPOROSIS
     Dosage: UNK UNK, Q6MO
     Route: 058
     Dates: start: 20110512, end: 20111101
  2. TEGRETOL [Concomitant]
     Indication: DIZZINESS
     Dosage: 100 MG, TID
     Route: 048
     Dates: start: 20080101
  3. KALCIPOS-D [Concomitant]
     Indication: OSTEOPOROSIS
     Dosage: UNK UNK, QD
     Route: 048
     Dates: start: 20100101

REACTIONS (5)
  - PNEUMONIA [None]
  - SPONDYLITIS [None]
  - SINUSITIS [None]
  - PAIN IN JAW [None]
  - URINARY TRACT INFECTION [None]
